FAERS Safety Report 10164856 (Version 1)
Quarter: 2014Q2

REPORT INFORMATION
  Report Type: Spontaneous
  Country: US (occurrence: US)
  Receive Date: 20140510
  Receipt Date: 20140510
  Transmission Date: 20141212
  Serious: No
  Sender: FDA-Public Use
  Company Number: US-BRISTOL-MYERS SQUIBB COMPANY-20528774

PATIENT
  Age: 76 Year
  Sex: Male
  Weight: 84.8 kg

DRUGS (10)
  1. BYETTA [Suspect]
     Indication: TYPE 2 DIABETES MELLITUS
  2. GLYBURIDE [Concomitant]
  3. METFORMIN [Concomitant]
  4. ALLOPURINOL [Concomitant]
  5. POTASSIUM [Concomitant]
  6. SIMVASTATIN [Concomitant]
  7. ENALAPRIL [Concomitant]
  8. METOPROLOL [Concomitant]
  9. CLOPIDOGREL BISULFATE [Concomitant]
  10. ECOTRIN [Concomitant]

REACTIONS (5)
  - Decreased appetite [Unknown]
  - Weight decreased [Unknown]
  - Abdominal discomfort [Unknown]
  - Dry mouth [Unknown]
  - Hypoacusis [Unknown]
